FAERS Safety Report 7312822-8 (Version None)
Quarter: 2011Q1

REPORT INFORMATION
  Report Type: 
  Country: None (occurrence: None)
  Receive Date: 20110224
  Receipt Date: 20100628
  Transmission Date: 20110831
  Serious: No
  Sender: FDA-Public Use
  Company Number: US-MYLANLABS-2010S1008743

PATIENT
  Age: 59 Year
  Sex: Female
  Weight: 44 kg

DRUGS (11)
  1. METOPROLOL TARTRATE [Suspect]
     Indication: PALPITATIONS
     Route: 048
     Dates: start: 20100414, end: 20100514
  2. METOPROLOL TARTRATE [Suspect]
     Indication: TACHYCARDIA
     Route: 048
     Dates: start: 20100414, end: 20100514
  3. METOPROLOL TARTRATE [Suspect]
     Route: 048
     Dates: start: 20100514, end: 20100501
  4. METOPROLOL TARTRATE [Suspect]
     Route: 048
     Dates: start: 20100514, end: 20100501
  5. FOLIC ACID [Concomitant]
     Route: 048
  6. IBUPROFEN [Concomitant]
  7. PYRIDOSTIGMINE BROMIDE [Concomitant]
     Route: 048
  8. SPIRONOLACTONE [Concomitant]
     Route: 048
  9. IMMUNE GLOBULIN INTRAVENOUS (HUMAN) [Concomitant]
     Dosage: 5 DAYS MONTHLY
  10. NEUPOGEN [Concomitant]
     Dosage: PRN
     Route: 058
  11. HYDROXYCHLOROQUINE [Concomitant]
     Route: 048

REACTIONS (6)
  - CONFUSIONAL STATE [None]
  - NAUSEA [None]
  - FLUID RETENTION [None]
  - URINE OUTPUT DECREASED [None]
  - HYPONATRAEMIA [None]
  - HEADACHE [None]
